FAERS Safety Report 9643546 (Version 1)
Quarter: 2013Q4

REPORT INFORMATION
  Report Type: Spontaneous
  Country: US (occurrence: US)
  Receive Date: 20131024
  Receipt Date: 20131024
  Transmission Date: 20140711
  Serious: No
  Sender: FDA-Public Use
  Company Number: US-BAYER-2013-129601

PATIENT
  Sex: Female
  Weight: 61.22 kg

DRUGS (6)
  1. BETASERON [Suspect]
     Dosage: 0.25 MG, QOD
     Route: 058
  2. GABAPENTIN [Concomitant]
     Dosage: 100 MG, UNK
  3. VITAMIN D [Concomitant]
     Dosage: 1000 IU, UNK
  4. DETROL [Concomitant]
     Dosage: 1 MG, UNK
  5. PAXIL [Concomitant]
     Dosage: 10 MG, UNK
  6. CRESTOR [Concomitant]
     Dosage: 10 MG, UNK

REACTIONS (2)
  - Headache [Unknown]
  - Influenza like illness [Unknown]
